FAERS Safety Report 10591969 (Version 5)
Quarter: 2015Q2

REPORT INFORMATION
  Report Type: Report from Study
  Country: CA (occurrence: CA)
  Receive Date: 20141119
  Receipt Date: 20150403
  Transmission Date: 20150821
  Serious: Yes (Hospitalization, Other)
  Sender: FDA-Public Use
  Company Number: CA-ROCHE-1365257

PATIENT
  Age: 55 Year
  Sex: Female
  Weight: 94 kg

DRUGS (5)
  1. PREDNISONE. [Concomitant]
     Active Substance: PREDNISONE
  2. DILAUDID [Concomitant]
     Active Substance: HYDROMORPHONE HYDROCHLORIDE
  3. ARAVA [Concomitant]
     Active Substance: LEFLUNOMIDE
  4. ACTEMRA [Suspect]
     Active Substance: TOCILIZUMAB
     Indication: RHEUMATOID ARTHRITIS
     Route: 042
     Dates: start: 20140120
  5. TYLENOL [Concomitant]
     Active Substance: ACETAMINOPHEN
     Route: 065

REACTIONS (7)
  - Hip fracture [Recovered/Resolved]
  - Tooth disorder [Unknown]
  - Fluid retention [Not Recovered/Not Resolved]
  - Blood pressure increased [Not Recovered/Not Resolved]
  - Nasal ulcer [Recovered/Resolved]
  - Increased tendency to bruise [Unknown]
  - Weight increased [Unknown]

NARRATIVE: CASE EVENT DATE: 20140312
